FAERS Safety Report 8531127-0 (Version None)
Quarter: 2012Q3

REPORT INFORMATION
  Report Type: 
  Country: None (occurrence: None)
  Receive Date: 20120723
  Receipt Date: 20120719
  Transmission Date: 20120928
  Serious: Yes (Life-Threatening, Hospitalization)
  Sender: FDA-Public Use
  Company Number: US-ASTRAZENECA-2012SE50997

PATIENT
  Age: 46 Year
  Sex: Female
  Weight: 84.4 kg

DRUGS (12)
  1. NEXIUM [Suspect]
     Route: 048
     Dates: start: 20120113
  2. DARUNAVIR ETHANOLATE [Suspect]
     Indication: HIV INFECTION
     Route: 048
     Dates: start: 20111213, end: 20120402
  3. IRON SUPPLEMENT [Suspect]
     Dosage: TAKEN ON INTERMITTENT BASIS FOR ONE YEAR
     Route: 065
     Dates: start: 20110101
  4. COBICISTAT [Suspect]
     Indication: HIV INFECTION
     Route: 048
     Dates: start: 20111213, end: 20120402
  5. BYSTOLIC [Concomitant]
     Dates: start: 20031101
  6. XOPENEX [Concomitant]
     Dates: start: 20120501
  7. LISINOPRIL AND HYDROCHLOROTHIAZIDE [Suspect]
     Indication: HYPERTENSION
     Route: 048
     Dates: start: 20080615, end: 20120402
  8. COBICISTAT [Suspect]
     Route: 048
     Dates: start: 20120406
  9. DARUNAVIR ETHANOLATE [Suspect]
     Route: 048
     Dates: start: 20120406
  10. DULERA [Concomitant]
     Dates: start: 20111213
  11. EMTRICITABINE/TENOFOVIR DISOPROXIL FUMARATE [Suspect]
     Indication: HIV INFECTION
     Route: 048
     Dates: start: 20111213, end: 20120402
  12. EMTRICITABINE/TENOFOVIR DISOPROXIL FUMARATE [Suspect]
     Route: 048
     Dates: start: 20120406

REACTIONS (12)
  - DYSPNOEA [None]
  - HYPERSENSITIVITY [None]
  - DRUG INEFFECTIVE [None]
  - SWOLLEN TONGUE [None]
  - ANGIOEDEMA [None]
  - SWELLING FACE [None]
  - OROPHARYNGEAL PAIN [None]
  - OEDEMA PERIPHERAL [None]
  - HEADACHE [None]
  - ACUTE RESPIRATORY FAILURE [None]
  - LOCAL SWELLING [None]
  - BLOOD PRESSURE INCREASED [None]
